FAERS Safety Report 16306311 (Version 2)
Quarter: 2021Q1

REPORT INFORMATION
  Report Type: Spontaneous
  Country: US (occurrence: US)
  Receive Date: 20190513
  Receipt Date: 20210218
  Transmission Date: 20210419
  Serious: Yes (Other)
  Sender: FDA-Public Use
  Company Number: US-ASTRAZENECA-2019SE63778

PATIENT
  Age: 20066 Day
  Sex: Female

DRUGS (47)
  1. NEXIUM 24HR [Suspect]
     Active Substance: ESOMEPRAZOLE MAGNESIUM
     Indication: GASTROOESOPHAGEAL REFLUX DISEASE
     Route: 048
     Dates: end: 2016
  2. MELATONIN [Concomitant]
     Active Substance: MELATONIN
     Dates: start: 2019
  3. MULTIVITAMIN [Concomitant]
     Active Substance: VITAMINS
     Dates: start: 2019
  4. VITAMIN C [Concomitant]
     Active Substance: ASCORBIC ACID
     Dates: start: 2019
  5. OXYBUTYNIN. [Concomitant]
     Active Substance: OXYBUTYNIN CHLORIDE
  6. FLUCONAZOLE. [Concomitant]
     Active Substance: FLUCONAZOLE
  7. ONDANSETRON [Concomitant]
     Active Substance: ONDANSETRON
  8. AMOXICILLIN. [Concomitant]
     Active Substance: AMOXICILLIN
  9. MUCINEX [Concomitant]
     Active Substance: GUAIFENESIN
  10. PULMICORT TURBUHALER [Concomitant]
     Active Substance: BUDESONIDE
  11. ACIDOPHILUS [Concomitant]
     Active Substance: LACTOBACILLUS ACIDOPHILUS
  12. FERROUS FUMARATE [Concomitant]
     Active Substance: FERROUS FUMARATE
  13. TRIAMTERENE. [Concomitant]
     Active Substance: TRIAMTERENE
  14. HYDROCODON [Concomitant]
     Active Substance: HYDROCODONE
  15. SENNA [Concomitant]
     Active Substance: SENNA LEAF\SENNOSIDES\SENNOSIDES A AND B
  16. TRAMADOL. [Concomitant]
     Active Substance: TRAMADOL
  17. NEXIUM [Suspect]
     Active Substance: ESOMEPRAZOLE MAGNESIUM
     Indication: GASTROOESOPHAGEAL REFLUX DISEASE
     Route: 048
     Dates: end: 2016
  18. PRILOSEC [Suspect]
     Active Substance: OMEPRAZOLE MAGNESIUM
     Indication: GASTROOESOPHAGEAL REFLUX DISEASE
     Route: 048
     Dates: end: 2019
  19. LANSOPRAZOLE. [Suspect]
     Active Substance: LANSOPRAZOLE
     Indication: GASTROOESOPHAGEAL REFLUX DISEASE
     Route: 065
     Dates: end: 2016
  20. PROTONIX [Suspect]
     Active Substance: PANTOPRAZOLE SODIUM
     Indication: GASTROOESOPHAGEAL REFLUX DISEASE
     Route: 065
     Dates: start: 2013
  21. FLUNISOLIDE. [Concomitant]
     Active Substance: FLUNISOLIDE
  22. BENADRYL [Concomitant]
     Active Substance: DIPHENHYDRAMINE HYDROCHLORIDE
     Indication: HYPERSENSITIVITY
     Dates: start: 2019
  23. EXCEDRIN [Concomitant]
     Active Substance: ACETAMINOPHEN\ASPIRIN\CAFFEINE
     Indication: MIGRAINE
     Dates: start: 2019
  24. TOPIRAMATE. [Concomitant]
     Active Substance: TOPIRAMATE
  25. CHERATUSSIN [Concomitant]
     Active Substance: AMMONIUM CHLORIDE\DEXTROMETHORPHAN\SODIUM CITRATE
  26. METOCLOPRAMIDE. [Concomitant]
     Active Substance: METOCLOPRAMIDE
  27. WARFARIN [Concomitant]
     Active Substance: WARFARIN
  28. VESICARE [Concomitant]
     Active Substance: SOLIFENACIN SUCCINATE
  29. AMIODARONE [Concomitant]
     Active Substance: AMIODARONE
  30. IBUPROFEN. [Concomitant]
     Active Substance: IBUPROFEN
  31. NYSTATIN. [Concomitant]
     Active Substance: NYSTATIN
  32. ADVAIR HFA [Concomitant]
     Active Substance: FLUTICASONE PROPIONATE\SALMETEROL XINAFOATE
  33. EPIPEN [Concomitant]
     Active Substance: EPINEPHRINE
  34. DOCUSATE [Concomitant]
     Active Substance: DOCUSATE
  35. LISINOPRIL. [Concomitant]
     Active Substance: LISINOPRIL
     Dates: start: 2019
  36. LYRICA [Concomitant]
     Active Substance: PREGABALIN
  37. MUPIROCIN. [Concomitant]
     Active Substance: MUPIROCIN
  38. METHOCARBAMOL. [Concomitant]
     Active Substance: METHOCARBAMOL
  39. VOLTAREN [Concomitant]
     Active Substance: DICLOFENAC SODIUM
  40. RANITIDINE. [Concomitant]
     Active Substance: RANITIDINE
  41. TORSEMIDE. [Concomitant]
     Active Substance: TORSEMIDE
     Dates: start: 2018
  42. ACETAMINOPHEN. [Concomitant]
     Active Substance: ACETAMINOPHEN
     Indication: PAIN
     Dates: start: 2019
  43. CYANOCOBALAMIN. [Concomitant]
     Active Substance: CYANOCOBALAMIN
  44. CITALOPRAM [Concomitant]
     Active Substance: CITALOPRAM HYDROBROMIDE
  45. HYDROMET [Concomitant]
     Active Substance: HOMATROPINE METHYLBROMIDE\HYDROCODONE BITARTRATE
  46. CEFUROXIME. [Concomitant]
     Active Substance: CEFUROXIME
  47. BENZONATATE. [Concomitant]
     Active Substance: BENZONATATE

REACTIONS (3)
  - Nephrogenic anaemia [Unknown]
  - Chronic kidney disease [Not Recovered/Not Resolved]
  - Renal failure [Unknown]

NARRATIVE: CASE EVENT DATE: 20170313
